FAERS Safety Report 4376845-3 (Version None)
Quarter: 2004Q2

REPORT INFORMATION
  Report Type: 
  Country: None (occurrence: None)
  Receive Date: 20040609
  Receipt Date: 20040316
  Transmission Date: 20050107
  Serious: Yes (Other)
  Sender: FDA-Public Use
  Company Number: PHEH2003US08319

PATIENT
  Age: 79 Year
  Sex: Female

DRUGS (12)
  1. GLEEVEC [Suspect]
     Indication: CHRONIC MYELOID LEUKAEMIA
     Dosage: 300 MG, QD, ORAL
     Route: 048
     Dates: start: 20030101
  2. GLEEVEC [Suspect]
     Indication: CHRONIC MYELOID LEUKAEMIA
     Dosage: 100 MG, TID, ORAL
     Route: 048
  3. DEPAKOTE [Concomitant]
  4. THORAZINE [Concomitant]
  5. ZOLOFT [Concomitant]
  6. CELEBREX [Concomitant]
  7. TIAZAC [Concomitant]
  8. NEURONTIN [Concomitant]
  9. TRAMADOL HCL [Concomitant]
  10. PRILOSEC [Concomitant]
  11. COMPAZINE [Concomitant]
  12. FOLIC ACID [Concomitant]

REACTIONS (4)
  - EYE REDNESS [None]
  - EYELID OEDEMA [None]
  - LACRIMATION INCREASED [None]
  - OEDEMA PERIPHERAL [None]
